FAERS Safety Report 5093777-6 (Version None)
Quarter: 2006Q3

REPORT INFORMATION
  Report Type: 
  Country: None (occurrence: None)
  Receive Date: 20060728
  Receipt Date: 20060509
  Transmission Date: 20061208
  Serious: No
  Sender: FDA-Public Use
  Company Number: 253106

PATIENT
  Age: 70 Year
  Sex: Male

DRUGS (9)
  1. LEVEMIR [Suspect]
     Indication: INSULIN-REQUIRING TYPE II DIABETES MELLITUS
     Dosage: 40 IU, QD, SUBCUTANEOUS
     Route: 058
     Dates: start: 20060301
  2. AVANDIA [Concomitant]
  3. TRICOR [Concomitant]
  4. CRESTOR [Concomitant]
  5. ZETIA [Concomitant]
  6. LOTREL [Concomitant]
  7. CYMBALTA [Concomitant]
  8. ASPIRIN [Concomitant]
  9. NOVOLOG [Concomitant]

REACTIONS (1)
  - RASH [None]
